FAERS Safety Report 18035433 (Version 1)
Quarter: 2020Q3

REPORT INFORMATION
  Report Type: Spontaneous
  Country: US (occurrence: US)
  Receive Date: 20200717
  Receipt Date: 20200717
  Transmission Date: 20201103
  Serious: Yes (Hospitalization)
  Sender: FDA-Public Use
  Company Number: US-GW PHARMA-202007USGW02505

PATIENT

DRUGS (1)
  1. EPIDIOLEX [Suspect]
     Active Substance: CANNABIDIOL
     Indication: PRODUCT USED FOR UNKNOWN INDICATION
     Dosage: 900 MILLIGRAM, QD (600MG EVERY MORNING AND 300MG EVERY EVENING)
     Route: 048
     Dates: start: 202002

REACTIONS (1)
  - Brain operation [Not Recovered/Not Resolved]

NARRATIVE: CASE EVENT DATE: 2020
